FAERS Safety Report 20044317 (Version 2)
Quarter: 2021Q4

REPORT INFORMATION
  Report Type: Report from Study
  Country: US (occurrence: None)
  Receive Date: 20211108
  Receipt Date: 20211127
  Transmission Date: 20220304
  Serious: Yes (Hospitalization)
  Sender: FDA-Public Use
  Company Number: US-ROCHE-2017443

PATIENT
  Age: 76 Year
  Sex: Male
  Weight: 69.5 kg

DRUGS (6)
  1. ATEZOLIZUMAB [Suspect]
     Active Substance: ATEZOLIZUMAB
     Indication: Colorectal cancer metastatic
     Dosage: OVER 30-60 MINUTES ON DAY 1
     Route: 042
     Dates: start: 20171013
  2. BEVACIZUMAB [Suspect]
     Active Substance: BEVACIZUMAB
     Indication: Colorectal cancer metastatic
     Dosage: OVER 30-90 MINUTES ON DAY 1
     Route: 042
     Dates: start: 20171013
  3. CAPECITABINE [Suspect]
     Active Substance: CAPECITABINE
     Indication: Colorectal cancer metastatic
     Dosage: ON DAY 1-14 OF 21 DAY CYCLE?BID ON DAYS 1-14. COURSES REPEAT EVERY 21 DAYS
     Route: 048
     Dates: start: 20171025
  4. TAMSULOSIN [Concomitant]
     Active Substance: TAMSULOSIN
  5. LOVENOX [Concomitant]
     Active Substance: ENOXAPARIN SODIUM
     Route: 058
  6. POTASSIUM [Concomitant]
     Active Substance: POTASSIUM

REACTIONS (1)
  - Fall [Unknown]

NARRATIVE: CASE EVENT DATE: 20171025
